FAERS Safety Report 11314155 (Version 1)
Quarter: 2015Q3

REPORT INFORMATION
  Report Type: Spontaneous
  Country: US (occurrence: US)
  Receive Date: 20150727
  Receipt Date: 20150727
  Transmission Date: 20151125
  Serious: No
  Sender: FDA-Public Use
  Company Number: US-BAYER-2015-380469

PATIENT
  Age: 56 Year
  Sex: Female
  Weight: 41 kg

DRUGS (7)
  1. PERCOCET [Concomitant]
     Active Substance: ACETAMINOPHEN\OXYCODONE HYDROCHLORIDE
  2. ADAPTOL [Concomitant]
  3. MIRALAX [Suspect]
     Active Substance: POLYETHYLENE GLYCOL 3350
     Dosage: UNK
     Dates: start: 20150713
  4. VALIUM [Concomitant]
     Active Substance: DIAZEPAM
  5. MIRALAX [Suspect]
     Active Substance: POLYETHYLENE GLYCOL 3350
     Dosage: 1 DF, UNK
     Route: 048
  6. BUPRENORPHINE. [Concomitant]
     Active Substance: BUPRENORPHINE
  7. MAGNESIUM CITRATE. [Concomitant]
     Active Substance: MAGNESIUM CITRATE

REACTIONS (6)
  - Incorrect dose administered [None]
  - Blood glucose decreased [Not Recovered/Not Resolved]
  - Diarrhoea [Not Recovered/Not Resolved]
  - Nausea [Recovered/Resolved]
  - Product use issue [None]
  - Vomiting [Recovered/Resolved]

NARRATIVE: CASE EVENT DATE: 20150713
